FAERS Safety Report 17369637 (Version 3)
Quarter: 2020Q1

REPORT INFORMATION
  Report Type: Spontaneous
  Country: US (occurrence: US)
  Receive Date: 20200204
  Receipt Date: 20200219
  Transmission Date: 20200409
  Serious: Yes (Death, Other)
  Sender: FDA-Public Use
  Company Number: US-AUROBINDO-AUR-APL-2020-005533

PATIENT
  Sex: Female

DRUGS (2)
  1. CLOZAPINE 50 MG TABLET USP [Suspect]
     Active Substance: CLOZAPINE
     Dosage: 250 MILLIGRAM IN THE NIGHT
     Route: 048
  2. CLOZAPINE 50 MG TABLET USP [Suspect]
     Active Substance: CLOZAPINE
     Indication: PRODUCT USED FOR UNKNOWN INDICATION
     Dosage: 225 MILLIGRAM IN THE MORNING
     Route: 048

REACTIONS (1)
  - Cardiovascular disorder [Fatal]
